FAERS Safety Report 20760856 (Version 2)
Quarter: 2022Q3

REPORT INFORMATION
  Report Type: Report from Study
  Country: US (occurrence: US)
  Receive Date: 20220428
  Receipt Date: 20220721
  Transmission Date: 20221026
  Serious: Yes (Hospitalization)
  Sender: FDA-Public Use
  Company Number: US-BEH-2022144511

PATIENT
  Age: 27 Year
  Sex: Male

DRUGS (3)
  1. HAEGARDA [Suspect]
     Active Substance: HUMAN C1-ESTERASE INHIBITOR
     Indication: Hereditary angioedema
     Dosage: 6000 INTERNATIONAL UNIT, BIW
     Route: 042
  2. HAEGARDA [Suspect]
     Active Substance: HUMAN C1-ESTERASE INHIBITOR
     Indication: Prophylaxis
  3. ICATIBANT [Concomitant]
     Active Substance: ICATIBANT ACETATE

REACTIONS (4)
  - Hereditary angioedema [Recovered/Resolved]
  - Product dose omission issue [Recovered/Resolved]
  - No adverse event [Unknown]
  - Off label use [Unknown]
